FAERS Safety Report 18103393 (Version 3)
Quarter: 2022Q2

REPORT INFORMATION
  Report Type: Spontaneous
  Country: US (occurrence: US)
  Receive Date: 20200803
  Receipt Date: 20220502
  Transmission Date: 20220721
  Serious: No
  Sender: FDA-Public Use
  Company Number: US-PFIZER INC-2020293009

PATIENT
  Age: 66 Year
  Sex: Female

DRUGS (1)
  1. LYRICA [Suspect]
     Active Substance: PREGABALIN
     Dosage: UNK

REACTIONS (5)
  - Head discomfort [Unknown]
  - Sinus disorder [Unknown]
  - Malaise [Unknown]
  - Pain [Unknown]
  - Incorrect dosage administered [Unknown]
